FAERS Safety Report 7885497-7 (Version None)
Quarter: 2011Q4

REPORT INFORMATION
  Report Type: 
  Country: None (occurrence: None)
  Receive Date: 20111102
  Receipt Date: 20111021
  Transmission Date: 20120403
  Serious: Yes (Other)
  Sender: FDA-Public Use
  Company Number: US-BAYER-2011-055271

PATIENT
  Sex: Female
  Weight: 87.528 kg

DRUGS (5)
  1. DROSPIRENONE AND ETHINYL ESTRADIOL [Suspect]
     Indication: ACNE
  2. DESOGESTREL AND ETHINYL ESTRADIOL [Concomitant]
     Dosage: UNK
     Dates: start: 20091124
  3. PRILOSEC [Concomitant]
     Dosage: UNK
     Dates: start: 20091221
  4. YASMIN [Suspect]
     Indication: ACNE
  5. DESOGESTREL AND ETHINYL ESTRADIOL [Concomitant]
     Dosage: UNK
     Dates: start: 20090924

REACTIONS (5)
  - CHOLELITHIASIS [None]
  - CHOLECYSTITIS CHRONIC [None]
  - CHOLECYSTITIS INFECTIVE [None]
  - PAIN [None]
  - INJURY [None]
